FAERS Safety Report 8720552 (Version 3)
Quarter: 2015Q2

REPORT INFORMATION
  Report Type: Report from Study
  Country: US (occurrence: US)
  Receive Date: 20120912
  Receipt Date: 20150624
  Transmission Date: 20150821
  Serious: Yes (Hospitalization)
  Sender: FDA-Public Use
  Company Number: US-ROCHE-1098835

PATIENT
  Age: 49 Year
  Sex: Female

DRUGS (7)
  1. ACTIVASE [Suspect]
     Active Substance: ALTEPLASE
     Indication: ACUTE MYOCARDIAL INFARCTION
     Route: 065
  2. DALMANE [Concomitant]
     Active Substance: FLURAZEPAM HYDROCHLORIDE
     Route: 048
  3. VALIUM [Concomitant]
     Active Substance: DIAZEPAM
     Route: 048
  4. DALMANE [Concomitant]
     Active Substance: FLURAZEPAM HYDROCHLORIDE
     Route: 048
  5. XYLOCAINE [Concomitant]
     Active Substance: LIDOCAINE HYDROCHLORIDE
     Route: 065
  6. MORPHINE [Concomitant]
     Active Substance: MORPHINE
     Route: 065
  7. XYLOCAINE [Concomitant]
     Active Substance: LIDOCAINE HYDROCHLORIDE
     Route: 065

REACTIONS (5)
  - Electrocardiogram ST segment elevation [Unknown]
  - Hyperhidrosis [Unknown]
  - Electrocardiogram T wave inversion [Unknown]
  - Nausea [Not Recovered/Not Resolved]
  - Chest pain [Unknown]

NARRATIVE: CASE EVENT DATE: 19890423
